FAERS Safety Report 5794248-1 (Version None)
Quarter: 2008Q2

REPORT INFORMATION
  Report Type: 
  Country: None (occurrence: None)
  Receive Date: 20080627
  Receipt Date: 20080619
  Transmission Date: 20081010
  Serious: Yes (Life-Threatening)
  Sender: FDA-Public Use
  Company Number: AU-AMGEN-QUU288803

PATIENT
  Sex: Female
  Weight: 98 kg

DRUGS (10)
  1. ARANESP [Suspect]
     Indication: DRUG USE FOR UNKNOWN INDICATION
     Dates: start: 20071010, end: 20071122
  2. CELLCEPT [Suspect]
     Indication: VASCULITIS
     Dates: start: 20071129
  3. CYCLOPHOSPHAMIDE [Suspect]
     Dates: start: 20070920, end: 20071129
  4. MINULET [Suspect]
     Indication: ORAL CONTRACEPTION
     Route: 048
     Dates: start: 20070920, end: 20071130
  5. CALCITRIOL [Concomitant]
     Dates: start: 20070920
  6. DOXYCYCLINE [Concomitant]
     Dates: start: 20071122, end: 20071130
  7. IRBESARTAN [Concomitant]
     Dates: start: 20070920
  8. PREDNISOLONE [Concomitant]
     Dates: start: 20070920
  9. RANITIDINE HCL [Concomitant]
     Dates: start: 20070920
  10. RESPRIM [Concomitant]
     Dates: start: 20070920

REACTIONS (1)
  - CEREBRAL VENOUS THROMBOSIS [None]
